FAERS Safety Report 10196847 (Version 2)
Quarter: 2014Q2

REPORT INFORMATION
  Report Type: Spontaneous
  Country: US (occurrence: US)
  Receive Date: 20140527
  Receipt Date: 20140609
  Transmission Date: 20141212
  Serious: Yes (Hospitalization, Other)
  Sender: FDA-Public Use
  Company Number: US-TAKEDA-2014TUS004103

PATIENT
  Age: 56 Year
  Sex: Female

DRUGS (3)
  1. BRINTELLIX [Suspect]
     Indication: DEPRESSION
     Dosage: 10 MG, 1 TABLET DAILY
     Route: 048
     Dates: start: 20140516
  2. ZOLOFT [Concomitant]
     Indication: DEPRESSION
     Dosage: 50 MG, UNK
     Route: 048
  3. ATIVAN [Concomitant]
     Dosage: 1 MG, TID

REACTIONS (3)
  - Suicidal ideation [Recovered/Resolved]
  - Condition aggravated [Recovered/Resolved]
  - Emotional distress [Not Recovered/Not Resolved]
